FAERS Safety Report 18758313 (Version 2)
Quarter: 2021Q1

REPORT INFORMATION
  Report Type: Spontaneous
  Country: US (occurrence: US)
  Receive Date: 20210120
  Receipt Date: 20210130
  Transmission Date: 20210419
  Serious: Yes (Hospitalization)
  Sender: FDA-Public Use
  Company Number: US-AUROBINDO-AUR-APL-2021-002005

PATIENT
  Age: 48 Year
  Sex: Female

DRUGS (1)
  1. SEVELAMER CARBONATE. [Suspect]
     Active Substance: SEVELAMER CARBONATE
     Indication: PROPHYLAXIS
     Dosage: UNK
     Route: 065

REACTIONS (8)
  - Faeces discoloured [Recovering/Resolving]
  - Diarrhoea [Recovering/Resolving]
  - Nausea [Recovering/Resolving]
  - Anaemia [Recovering/Resolving]
  - Colitis [Recovering/Resolving]
  - Abdominal pain [Recovering/Resolving]
  - Leukocytosis [Recovering/Resolving]
  - Hypotension [Recovering/Resolving]
